FAERS Safety Report 7681672-5 (Version None)
Quarter: 2011Q3

REPORT INFORMATION
  Report Type: 
  Country: None (occurrence: None)
  Receive Date: 20110812
  Receipt Date: 20110804
  Transmission Date: 20111222
  Serious: Yes (Other)
  Sender: FDA-Public Use
  Company Number: IT-CELGENEUS-083-C5013-11061800

PATIENT
  Sex: Male
  Weight: 75 kg

DRUGS (6)
  1. PREDNISONE [Suspect]
     Indication: MULTIPLE MYELOMA
     Dosage: 160 MILLIGRAM
     Route: 065
     Dates: start: 20080319
  2. MELPHALAN HYDROCHLORIDE [Suspect]
     Dosage: 0.18 MG/KG
     Route: 065
     Dates: end: 20081216
  3. PREDNISONE [Suspect]
     Dosage: 160 MILLIGRAM
     Route: 065
     Dates: end: 20081216
  4. LENALIDOMIDE [Suspect]
     Indication: MULTIPLE MYELOMA
     Dosage: 10 MILLIGRAM
     Route: 048
     Dates: start: 20080319
  5. LENALIDOMIDE [Suspect]
     Dosage: 10 MILLIGRAM
     Route: 048
     Dates: end: 20100920
  6. MELPHALAN HYDROCHLORIDE [Suspect]
     Indication: MULTIPLE MYELOMA
     Dosage: 0.18 MG/KG
     Route: 065
     Dates: start: 20080319

REACTIONS (1)
  - ACUTE LEUKAEMIA [None]
